FAERS Safety Report 16629251 (Version 1)
Quarter: 2019Q3

REPORT INFORMATION
  Report Type: Spontaneous
  Country: US (occurrence: US)
  Receive Date: 20190612
  Receipt Date: 20190612
  Transmission Date: 20191004
  Serious: No
  Sender: FDA-Public Use
  Company Number: None

PATIENT

DRUGS (1)
  1. MUPIROCIN OINTMENT 2 PERCENT - 22 GRAMS [Suspect]
     Active Substance: MUPIROCIN
     Indication: DIAGNOSTIC PROCEDURE
     Dosage: ?          QUANTITY:20 MG MILLIGRAM(S);?
     Route: 045
     Dates: start: 20190215, end: 20190220

REACTIONS (1)
  - Product label confusion [None]

NARRATIVE: CASE EVENT DATE: 20190215
